FAERS Safety Report 9105398 (Version 1)
Quarter: 2013Q1

REPORT INFORMATION
  Report Type: Spontaneous
  Country: AU (occurrence: AU)
  Receive Date: 20130220
  Receipt Date: 20130220
  Transmission Date: 20140127
  Serious: Yes (Other)
  Sender: FDA-Public Use
  Company Number: CHPA2013AU003305

PATIENT
  Age: 15 Year
  Sex: Male

DRUGS (1)
  1. OTRIVIN [Suspect]
     Indication: NASAL CONGESTION
     Dosage: 1 DF PER NOSTRIL, PRN
     Route: 045

REACTIONS (2)
  - Disease recurrence [Unknown]
  - Epistaxis [Unknown]
